FAERS Safety Report 9988756 (Version 1)
Quarter: 2013Q4

REPORT INFORMATION
  Report Type: Spontaneous
  Country: CH (occurrence: None)
  Receive Date: 20131008
  Receipt Date: 20131008
  Transmission Date: 20140711
  Serious: Yes (Other)
  Sender: FDA-Public Use
  Company Number: 20130451

PATIENT
  Age: 22 Year
  Sex: Female
  Weight: 65 kg

DRUGS (2)
  1. FERINJECT [Suspect]
     Indication: IRON DEFICIENCY ANAEMIA
     Dosage: 100 MG IN 500 ML    OVER 90 MIN
     Route: 041
     Dates: start: 20130722, end: 20130722
  2. VIREAD [Concomitant]

REACTIONS (4)
  - Wrong technique in drug usage process [None]
  - Hypersensitivity [None]
  - Urticaria [None]
  - Wrong technique in drug usage process [None]
